FAERS Safety Report 6664386-X (Version None)
Quarter: 2010Q2

REPORT INFORMATION
  Report Type: 
  Country: None (occurrence: None)
  Receive Date: 20100401
  Receipt Date: 20100329
  Transmission Date: 20101027
  Serious: Yes (Life-Threatening)
  Sender: FDA-Public Use
  Company Number: PHHY2010LB19757

PATIENT
  Age: 14 Year
  Sex: Female

DRUGS (2)
  1. CYCLOSPORINE [Suspect]
     Dosage: 5 MG PER KG EVERY 24 HOURS
  2. PREDNISONE TAB [Suspect]
     Route: 048

REACTIONS (9)
  - APHASIA [None]
  - CAROTID ARTERY STENOSIS [None]
  - CONFUSIONAL STATE [None]
  - EYE ROLLING [None]
  - GRAND MAL CONVULSION [None]
  - HEADACHE [None]
  - METASTASES TO MENINGES [None]
  - MOYAMOYA DISEASE [None]
  - TONIC CONVULSION [None]
